FAERS Safety Report 9472751 (Version 1)
Quarter: 2013Q3

REPORT INFORMATION
  Report Type: Spontaneous
  Country: US (occurrence: US)
  Receive Date: 20130823
  Receipt Date: 20130823
  Transmission Date: 20140515
  Serious: No
  Sender: FDA-Public Use
  Company Number: US-PFIZER INC-2013243124

PATIENT
  Age: 52 Year
  Sex: Female
  Weight: 75.28 kg

DRUGS (3)
  1. LYRICA [Suspect]
     Indication: NEURALGIA
  2. FENTANYL [Concomitant]
     Dosage: 75 UG, UNK
  3. LYRICA [Suspect]
     Indication: NERVE INJURY
     Dosage: 75 MG, 2X/DAY
     Route: 048
     Dates: start: 20130820

REACTIONS (5)
  - Panic attack [Recovered/Resolved]
  - Anxiety [Recovered/Resolved]
  - Middle insomnia [Unknown]
  - Inappropriate affect [Unknown]
  - Sleep talking [Unknown]
